FAERS Safety Report 15485194 (Version 1)
Quarter: 2018Q4

REPORT INFORMATION
  Report Type: Spontaneous
  Country: US (occurrence: US)
  Receive Date: 20181010
  Receipt Date: 20181010
  Transmission Date: 20190205
  Serious: No
  Sender: FDA-Public Use
  Company Number: US-ROCHE-2157369

PATIENT
  Sex: Female
  Weight: 58.57 kg

DRUGS (4)
  1. CRANBERRY. [Concomitant]
     Active Substance: CRANBERRY
     Dosage: ONGOING: UNKNOWN
     Route: 048
     Dates: start: 20111115
  2. ZOFRAN [Concomitant]
     Active Substance: ONDANSETRON HYDROCHLORIDE
     Dosage: ONGOING: UNKNOWN
     Route: 048
     Dates: start: 20111115
  3. KETOROLAC [Concomitant]
     Active Substance: KETOROLAC\KETOROLAC TROMETHAMINE
     Dosage: ONGOING: UNKNOWN
     Route: 065
     Dates: start: 20160309
  4. ALECENSA [Suspect]
     Active Substance: ALECTINIB HYDROCHLORIDE
     Indication: NON-SMALL CELL LUNG CANCER
     Dosage: 4 CAPSULES TWICE DAILY
     Route: 048
     Dates: start: 20160519

REACTIONS (2)
  - Drug ineffective [Unknown]
  - Disease progression [Unknown]
